FAERS Safety Report 7357649-6 (Version None)
Quarter: 2011Q1

REPORT INFORMATION
  Report Type: 
  Country: None (occurrence: None)
  Receive Date: 20110317
  Receipt Date: 20110310
  Transmission Date: 20110831
  Serious: Yes (Other)
  Sender: FDA-Public Use
  Company Number: US-ELI_LILLY_AND_COMPANY-US201008008313

PATIENT
  Sex: Female

DRUGS (1)
  1. FORTEO [Suspect]
     Indication: OSTEOPOROSIS
     Dosage: 20 UG, DAILY (1/D)
     Route: 065

REACTIONS (5)
  - INJECTION SITE ERYTHEMA [None]
  - SINUSITIS [None]
  - CAROTID ARTERY DISEASE [None]
  - DYSPHONIA [None]
  - INJECTION SITE PAIN [None]
